FAERS Safety Report 7270905-5 (Version None)
Quarter: 2011Q1

REPORT INFORMATION
  Report Type: 
  Country: None (occurrence: None)
  Receive Date: 20110202
  Receipt Date: 20110124
  Transmission Date: 20110831
  Serious: Yes (Hospitalization, Other)
  Sender: FDA-Public Use
  Company Number: FR-BAYER-2011-008244

PATIENT
  Sex: Female

DRUGS (1)
  1. IZILOX [Suspect]
     Indication: SINUSITIS

REACTIONS (3)
  - VOMITING [None]
  - SYNCOPE [None]
  - DERMATITIS ALLERGIC [None]
